FAERS Safety Report 7416588-2 (Version None)
Quarter: 2011Q2

REPORT INFORMATION
  Report Type: 
  Country: None (occurrence: None)
  Receive Date: 20110415
  Receipt Date: 20110411
  Transmission Date: 20111010
  Serious: Yes (Hospitalization)
  Sender: FDA-Public Use
  Company Number: US-BIOGENIDEC-2011BI011336

PATIENT
  Age: 53 Year
  Sex: Female

DRUGS (2)
  1. TYSABRI [Suspect]
     Indication: MULTIPLE SCLEROSIS
     Route: 042
     Dates: start: 20100521
  2. LITHIUM [Concomitant]
     Indication: BIPOLAR DISORDER

REACTIONS (6)
  - HEADACHE [None]
  - NAUSEA [None]
  - VOMITING [None]
  - HEPATIC ENZYME INCREASED [None]
  - BILE DUCT STENOSIS [None]
  - PARAESTHESIA [None]
